FAERS Safety Report 16114116 (Version 2)
Quarter: 2021Q2

REPORT INFORMATION
  Report Type: Spontaneous
  Country: US (occurrence: US)
  Receive Date: 20190325
  Receipt Date: 20210413
  Transmission Date: 20210716
  Serious: No
  Sender: FDA-Public Use
  Company Number: US-ALLERGAN-1816187US

PATIENT
  Sex: Female
  Weight: 65.76 kg

DRUGS (2)
  1. LATISSE [Suspect]
     Active Substance: BIMATOPROST
     Dosage: 1 GTT, UNK
     Route: 061
     Dates: start: 201803
  2. LATISSE [Suspect]
     Active Substance: BIMATOPROST
     Indication: GROWTH OF EYELASHES
     Dosage: 1 GTT, UNK
     Route: 061
     Dates: start: 201801

REACTIONS (5)
  - Ocular hyperaemia [Recovering/Resolving]
  - Paraesthesia [Recovering/Resolving]
  - Foreign body sensation in eyes [Recovering/Resolving]
  - Swelling [Recovering/Resolving]
  - Eye infection [Recovering/Resolving]
